FAERS Safety Report 13526650 (Version 14)
Quarter: 2020Q1

REPORT INFORMATION
  Report Type: Report from Study
  Country: CO (occurrence: CO)
  Receive Date: 20170509
  Receipt Date: 20200218
  Transmission Date: 20200409
  Serious: Yes (Life-Threatening, Hospitalization, Other)
  Sender: FDA-Public Use
  Company Number: PHHY2017CO062936

PATIENT
  Age: 80 Year
  Sex: Female
  Weight: 54 kg

DRUGS (15)
  1. REVOLADE [Suspect]
     Active Substance: ELTROMBOPAG
     Dosage: 25 MG, QD
     Route: 048
  2. REVOLADE [Suspect]
     Active Substance: ELTROMBOPAG
     Dosage: 75 MG, QD
     Route: 048
  3. LEVOTHYROXINE. [Concomitant]
     Active Substance: LEVOTHYROXINE
     Indication: HYPOTHYROIDISM
     Dosage: 50 MG, QD
     Route: 048
  4. REVOLADE [Suspect]
     Active Substance: ELTROMBOPAG
     Dosage: 75 MG, QD
     Route: 048
  5. REVOLADE [Suspect]
     Active Substance: ELTROMBOPAG
     Dosage: 50 MG, QD
     Route: 048
  6. REVOLADE [Suspect]
     Active Substance: ELTROMBOPAG
     Dosage: 75 MG, QD
     Route: 048
  7. REVOLADE [Suspect]
     Active Substance: ELTROMBOPAG
     Dosage: 25 MG, (TWO TABLETS OF 25 MG A DAY)
     Route: 065
  8. REVOLADE [Suspect]
     Active Substance: ELTROMBOPAG
     Dosage: 50 MG, QD
     Route: 048
  9. ENALAPRIL [Concomitant]
     Active Substance: ENALAPRIL
     Indication: HYPERTENSION
     Dosage: 5 MG, BID
     Route: 048
  10. REVOLADE [Suspect]
     Active Substance: ELTROMBOPAG
     Dosage: 50 MG, QD
     Route: 048
  11. THYROXIN [Concomitant]
     Active Substance: LEVOTHYROXINE
     Indication: THYROID DISORDER
     Route: 065
  12. REVOLADE [Suspect]
     Active Substance: ELTROMBOPAG
     Indication: IMMUNE THROMBOCYTOPENIC PURPURA
     Dosage: 25 MG, BID
     Route: 048
     Dates: start: 20150204
  13. REVOLADE [Suspect]
     Active Substance: ELTROMBOPAG
     Dosage: UNK
     Route: 048
  14. LOVASTATIN. [Concomitant]
     Active Substance: LOVASTATIN
     Indication: BLOOD CHOLESTEROL ABNORMAL
     Dosage: 20 MG, QD
     Route: 048
  15. HIDROCLOROTIAZIDE [Concomitant]
     Active Substance: HYDROCHLOROTHIAZIDE
     Indication: PRODUCT USED FOR UNKNOWN INDICATION
     Dosage: 25 MG, QD
     Route: 048

REACTIONS (16)
  - Platelet count decreased [Not Recovered/Not Resolved]
  - Dysuria [Recovering/Resolving]
  - Gastritis [Unknown]
  - Yellow skin [Unknown]
  - Cystitis [Recovered/Resolved]
  - Contusion [Unknown]
  - Ocular icterus [Unknown]
  - Blood urine present [Unknown]
  - Incorrect dosage administered [Unknown]
  - Underweight [Unknown]
  - Apparent death [Unknown]
  - Gastrointestinal motility disorder [Unknown]
  - Constipation [Unknown]
  - Feeling abnormal [Not Recovered/Not Resolved]
  - Internal haemorrhage [Unknown]
  - Fear [Unknown]

NARRATIVE: CASE EVENT DATE: 20170418
